FAERS Safety Report 24966161 (Version 1)
Quarter: 2025Q1

REPORT INFORMATION
  Report Type: Spontaneous
  Country: US (occurrence: US)
  Receive Date: 20250213
  Receipt Date: 20250213
  Transmission Date: 20250409
  Serious: No
  Sender: JOHNSON AND JOHNSON
  Company Number: US-JNJFOC-20250184353

PATIENT
  Age: 49 Year
  Sex: Male

DRUGS (2)
  1. TREMFYA [Suspect]
     Active Substance: GUSELKUMAB
     Indication: Rheumatoid arthritis
  2. TREMFYA [Suspect]
     Active Substance: GUSELKUMAB
     Indication: Osteoarthritis

REACTIONS (3)
  - Product dose omission issue [Unknown]
  - Product temperature excursion issue [Unknown]
  - Off label use [Unknown]

NARRATIVE: CASE EVENT DATE: 20250126
